FAERS Safety Report 4265897-7 (Version None)
Quarter: 2004Q1

REPORT INFORMATION
  Report Type: 
  Country: None (occurrence: None)
  Receive Date: 20040106
  Receipt Date: 20031218
  Transmission Date: 20041129
  Serious: Yes (Hospitalization, Other)
  Sender: FDA-Public Use
  Company Number: FR-JNJFOC-20031000028

PATIENT
  Age: 35 Year
  Sex: Male
  Weight: 68 kg

DRUGS (6)
  1. REMICADE [Suspect]
     Indication: CROHN'S DISEASE
     Dosage: SEE IMAGE
     Route: 042
     Dates: start: 20030403, end: 20030403
  2. REMICADE [Suspect]
     Indication: CROHN'S DISEASE
     Dosage: SEE IMAGE
     Route: 042
     Dates: start: 20030418, end: 20030418
  3. REMICADE [Suspect]
     Indication: CROHN'S DISEASE
     Dosage: SEE IMAGE
     Route: 042
     Dates: start: 20030522, end: 20030522
  4. AZATHIOPRINE [Suspect]
     Indication: CROHN'S DISEASE
     Dosage: 150 MG , 1 IN 1 DAY
     Dates: start: 19920101, end: 20030801
  5. RUBOZINC (ZINC GLUCONATE) [Concomitant]
  6. ADVIL [Concomitant]

REACTIONS (17)
  - ANTIBODY TEST POSITIVE [None]
  - BACTERIAL CULTURE POSITIVE [None]
  - BLOOD SODIUM DECREASED [None]
  - C-REACTIVE PROTEIN INCREASED [None]
  - CHEST X-RAY ABNORMAL [None]
  - CHOLESTASIS [None]
  - CYTOLYTIC HEPATITIS [None]
  - HAEMOGLOBIN DECREASED [None]
  - HEPATITIS [None]
  - HERPES VIRUS INFECTION [None]
  - HYPOXIA [None]
  - IMPLANT SITE INFECTION [None]
  - LUNG DISORDER [None]
  - PHARYNGITIS [None]
  - PULMONARY INTERSTITIAL EMPHYSEMA SYNDROME [None]
  - PULMONARY TUBERCULOSIS [None]
  - RESPIRATORY DISORDER [None]
